FAERS Safety Report 5920946-2 (Version None)
Quarter: 2008Q4

REPORT INFORMATION
  Report Type: 
  Country: None (occurrence: None)
  Receive Date: 20081016
  Receipt Date: 20081006
  Transmission Date: 20090506
  Serious: Yes (Other)
  Sender: FDA-Public Use
  Company Number: BR-JNJFOC-20080704587

PATIENT
  Sex: Female
  Weight: 56 kg

DRUGS (3)
  1. HALDOL [Suspect]
     Indication: HALLUCINATION
     Route: 065
  2. PHENOBARBITAL TAB [Concomitant]
     Indication: CONVULSION
     Route: 048
  3. MANTIDAN [Concomitant]
     Route: 048

REACTIONS (10)
  - ANOREXIA [None]
  - CONSTIPATION [None]
  - DIARRHOEA [None]
  - FATIGUE [None]
  - FINGER DEFORMITY [None]
  - LABYRINTHITIS [None]
  - NUCHAL RIGIDITY [None]
  - OFF LABEL USE [None]
  - SOMNOLENCE [None]
  - WEIGHT INCREASED [None]
